FAERS Safety Report 16885266 (Version 4)
Quarter: 2021Q3

REPORT INFORMATION
  Report Type: Report from Study
  Country: US (occurrence: US)
  Receive Date: 20191004
  Receipt Date: 20210903
  Transmission Date: 20211014
  Serious: Yes (Death, Life-Threatening, Other)
  Sender: FDA-Public Use
  Company Number: US-PFIZER INC-2019422879

PATIENT

DRUGS (2)
  1. PEXIDARTINIB [Suspect]
     Active Substance: PEXIDARTINIB
     Indication: NEUROFIBROSARCOMA
     Dosage: 1000 MG, CYCLIC (28 DAYS CYCLE)
  2. SIROLIMUS. [Suspect]
     Active Substance: SIROLIMUS
     Indication: NEUROFIBROSARCOMA
     Dosage: 2 MG, DAILY, (28 DAYS CYCLE)
     Route: 048

REACTIONS (2)
  - Dehydration [Fatal]
  - Cardiac arrest [Unknown]
